FAERS Safety Report 5989258-5 (Version None)
Quarter: 2008Q4

REPORT INFORMATION
  Report Type: 
  Country: None (occurrence: None)
  Receive Date: 20081210
  Receipt Date: 20081120
  Transmission Date: 20090506
  Serious: Yes (Death)
  Sender: FDA-Public Use
  Company Number: JP-ABBOTT-08P-087-0490287-00

PATIENT
  Age: 81 Year
  Sex: Male
  Weight: 45.5 kg

DRUGS (3)
  1. LEUPROLIDE ACETATE [Suspect]
     Indication: PROSTATE CANCER STAGE IV
     Route: 058
     Dates: start: 20070119, end: 20080123
  2. BICALUTAMIDE [Concomitant]
     Indication: PROSTATE CANCER STAGE IV
     Route: 048
     Dates: start: 20070113, end: 20080312
  3. TAMSULOSIN HCL [Concomitant]
     Indication: DYSURIA
     Route: 048
     Dates: end: 20080312

REACTIONS (2)
  - CONSTIPATION [None]
  - GASTRIC CANCER [None]
